FAERS Safety Report 13038914 (Version 3)
Quarter: 2017Q1

REPORT INFORMATION
  Report Type: Spontaneous
  Country: FR (occurrence: FR)
  Receive Date: 20161219
  Receipt Date: 20170125
  Transmission Date: 20170428
  Serious: Yes (Other)
  Sender: FDA-Public Use
  Company Number: FR-SUN PHARMACEUTICAL INDUSTRIES LTD-2016R1-129613

PATIENT
  Age: 14 Year
  Sex: Female

DRUGS (2)
  1. EUPHON (CODEINE\HERBALS) [Suspect]
     Active Substance: CODEINE\HERBALS
     Indication: PRODUCT USED FOR UNKNOWN INDICATION
     Dosage: UNK
     Route: 065
  2. PHENERGAN [Suspect]
     Active Substance: PROMETHAZINE HYDROCHLORIDE
     Indication: PRODUCT USED FOR UNKNOWN INDICATION
     Dosage: UNK
     Route: 065

REACTIONS (4)
  - Substance use [Unknown]
  - Hallucination [Unknown]
  - Somnolence [Unknown]
  - Anticholinergic syndrome [Unknown]
